FAERS Safety Report 4449735-5 (Version None)
Quarter: 2004Q3

REPORT INFORMATION
  Report Type: 
  Country: None (occurrence: None)
  Receive Date: 20040913
  Receipt Date: 20040831
  Transmission Date: 20050211
  Serious: Yes (Death, Hospitalization)
  Sender: FDA-Public Use
  Company Number: 163-20785-04070038

PATIENT
  Age: 67 Year
  Sex: Male

DRUGS (4)
  1. THALOMID [Suspect]
     Indication: WALDENSTROM'S MACROGLOBULINAEMIA
     Dosage: 200 MG, AT BEDTIME, ORAL
     Route: 048
     Dates: start: 20020722, end: 20040501
  2. METOPROLOL TARTRATE [Concomitant]
  3. CLONIDINE [Concomitant]
  4. NORVASC [Concomitant]

REACTIONS (4)
  - CARDIAC DISORDER [None]
  - MYOCARDIAL INFARCTION [None]
  - PULMONARY OEDEMA [None]
  - RESPIRATORY FAILURE [None]
